FAERS Safety Report 8190194-7 (Version None)
Quarter: 2012Q1

REPORT INFORMATION
  Report Type: 
  Country: None (occurrence: None)
  Receive Date: 20120305
  Receipt Date: 20120222
  Transmission Date: 20120608
  Serious: Yes (Other)
  Sender: FDA-Public Use
  Company Number: 2012-00070

PATIENT
  Age: 65 Year
  Sex: Female

DRUGS (1)
  1. OXYMETAZOLINE HYDROCHLORIDE SPRAY [Suspect]
     Indication: NASAL CONGESTION
     Dosage: 1 TIME DAILY
     Dates: start: 20111220

REACTIONS (2)
  - DRUG DEPENDENCE [None]
  - INSOMNIA [None]
